FAERS Safety Report 17914117 (Version 1)
Quarter: 2020Q2

REPORT INFORMATION
  Report Type: Spontaneous
  Country: US (occurrence: US)
  Receive Date: 20200618
  Receipt Date: 20200618
  Transmission Date: 20200714
  Serious: No
  Sender: FDA-Public Use
  Company Number: US-BAYER-2020-115306

PATIENT
  Age: 76 Year
  Sex: Female

DRUGS (2)
  1. SYNTHROID [Concomitant]
     Active Substance: LEVOTHYROXINE SODIUM
     Dosage: 88 ?G
  2. ESTRADIOL HEMIHYDRATE [Suspect]
     Active Substance: ESTRADIOL HEMIHYDRATE
     Dosage: UNK
     Route: 062
     Dates: start: 20200602

REACTIONS (6)
  - Application site erythema [Not Recovered/Not Resolved]
  - Application site swelling [None]
  - Application site pain [None]
  - Application site inflammation [Not Recovered/Not Resolved]
  - Application site ulcer [Not Recovered/Not Resolved]
  - Incorrect dose administered by product [None]

NARRATIVE: CASE EVENT DATE: 202006
